FAERS Safety Report 4373370-0 (Version None)
Quarter: 2004Q2

REPORT INFORMATION
  Report Type: 
  Country: None (occurrence: None)
  Receive Date: 20040603
  Receipt Date: 20040527
  Transmission Date: 20050107
  Serious: Yes (Death)
  Sender: FDA-Public Use
  Company Number: US-JNJFOC-20031101049

PATIENT
  Age: 73 Year
  Sex: Male

DRUGS (6)
  1. RISPERDAL [Suspect]
     Indication: PSYCHOTIC DISORDER
     Dosage: 3 MG, 2 IN 1 DAY
     Dates: start: 19980701
  2. ARTANE [Concomitant]
  3. LOTENSIN [Concomitant]
  4. HYDROCHLOROTHIAZIDE [Concomitant]
  5. HUMULIN 70/30 (HUMAN MIXTARD) [Concomitant]
  6. ASPIRIN [Concomitant]

REACTIONS (1)
  - DEATH [None]
